FAERS Safety Report 10040839 (Version 3)
Quarter: 2014Q2

REPORT INFORMATION
  Report Type: Spontaneous
  Country: US (occurrence: US)
  Receive Date: 20140327
  Receipt Date: 20140421
  Transmission Date: 20141212
  Serious: No
  Sender: FDA-Public Use
  Company Number: US-PFIZER INC-2014084324

PATIENT
  Sex: Female

DRUGS (10)
  1. FLAGYL [Suspect]
     Dosage: UNK
  2. LYRICA [Suspect]
     Dosage: UNK
  3. PROTONIX [Suspect]
     Dosage: UNK
  4. PREDNISONE [Suspect]
     Dosage: UNK
  5. PROMETHAZINE HCL [Suspect]
     Dosage: UNK
  6. BENADRYL [Suspect]
     Dosage: UNK
  7. DARVOCET [Suspect]
     Dosage: UNK
  8. VICODIN [Suspect]
     Dosage: UNK
  9. PHENERGAN [Suspect]
     Dosage: UNK
  10. ALLEGRA [Suspect]
     Dosage: UNK

REACTIONS (1)
  - Drug hypersensitivity [Unknown]
